FAERS Safety Report 18545567 (Version 1)
Quarter: 2020Q4

REPORT INFORMATION
  Report Type: Other
  Country: US (occurrence: US)
  Receive Date: 20201125
  Receipt Date: 20201125
  Transmission Date: 20210114
  Serious: Yes (Hospitalization, Other)
  Sender: FDA-Public Use
  Company Number: US-C B FLEET CO INC-202011-US-004089

PATIENT
  Age: 93 Year
  Sex: Female

DRUGS (1)
  1. ASPIRIN. [Suspect]
     Active Substance: ASPIRIN
     Indication: PRODUCT USED FOR UNKNOWN INDICATION
     Dosage: 81 MG TAKEN DAILY
     Route: 048

REACTIONS (5)
  - Swelling [Recovered/Resolved]
  - Product used for unknown indication [None]
  - Arthralgia [Recovered/Resolved]
  - Ecchymosis [Recovered/Resolved]
  - Vascular pseudoaneurysm [Recovered/Resolved]
